FAERS Safety Report 9055769 (Version 2)
Quarter: 2013Q1

REPORT INFORMATION
  Report Type: Other
  Country: GB (occurrence: GB)
  Receive Date: 20130206
  Receipt Date: 20130213
  Transmission Date: 20140127
  Serious: Yes (Hospitalization)
  Sender: FDA-Public Use
  Company Number: GB-WATSON-2013-01665

PATIENT
  Age: 65 Year
  Sex: Female
  Weight: 64 kg

DRUGS (12)
  1. DOXORUBICIN [Suspect]
     Indication: B-CELL LYMPHOMA
     Dosage: UNKNOWN
     Route: 065
  2. PREDNISONE (UNKNOWN) [Suspect]
     Indication: B-CELL LYMPHOMA
     Dosage: UNKNOWN
     Route: 065
  3. VINCRISTINE SULFATE [Suspect]
     Indication: B-CELL LYMPHOMA
     Dosage: UNKNOWN
     Route: 065
  4. RITUXIMAB [Concomitant]
     Indication: B-CELL LYMPHOMA
     Dosage: UNKNOWN. ROUTE: INTRAVENOUS DRIP.
     Route: 042
     Dates: start: 20121017
  5. CYCLOPHOSPHAMIDE [Suspect]
     Indication: B-CELL LYMPHOMA
     Dosage: UNKNOWN
     Route: 065
  6. DOSULEPIN [Concomitant]
     Indication: DEPRESSION
     Dosage: UNKNOWN
     Route: 065
  7. ZOPICLONE [Concomitant]
     Indication: PROPHYLAXIS
     Dosage: UNKNOWN
     Route: 065
  8. PHENOXYMETHYLPENICILLIN [Concomitant]
     Indication: SPLENECTOMY
     Dosage: UNKNOWN
     Route: 065
     Dates: start: 20120323
  9. FYBOGEL [Concomitant]
     Indication: CONSTIPATION
     Dosage: UNKNOWN
     Route: 065
  10. SENNA                              /00142201/ [Concomitant]
     Indication: CONSTIPATION
     Dosage: UNKNOWN
     Route: 065
  11. LAXIDO [Concomitant]
     Indication: CONSTIPATION
     Dosage: UNKNOWN
     Route: 065
     Dates: start: 20121026
  12. RANITIDINE [Concomitant]
     Indication: DYSPEPSIA
     Dosage: UNKNOWN
     Route: 065
     Dates: start: 20121026

REACTIONS (1)
  - Neutropenic sepsis [Not Recovered/Not Resolved]
